FAERS Safety Report 22091712 (Version 1)
Quarter: 2023Q1

REPORT INFORMATION
  Report Type: Spontaneous
  Country: CN (occurrence: CN)
  Receive Date: 20230314
  Receipt Date: 20230314
  Transmission Date: 20230417
  Serious: Yes (Hospitalization)
  Sender: FDA-Public Use
  Company Number: CN-AMGEN-CHNSP2023031225

PATIENT
  Age: 35 Year
  Sex: Male

DRUGS (4)
  1. OTEZLA [Suspect]
     Active Substance: APREMILAST
     Indication: Psoriasis
     Dosage: 10 MG, 30 MG, BID
     Route: 048
     Dates: start: 2022
  2. OTEZLA [Suspect]
     Active Substance: APREMILAST
     Dosage: 10 MG, 30 MG, BID
     Route: 048
  3. FLUOCINONIDE [Concomitant]
     Active Substance: FLUOCINONIDE
     Dosage: UNK
  4. GLYCYRRHIZIN [Concomitant]
     Active Substance: GLYCYRRHIZIN
     Dosage: UNK

REACTIONS (5)
  - Jaundice [Unknown]
  - Mycobacterium tuberculosis complex test positive [Unknown]
  - Hepatitis C antibody positive [Unknown]
  - COVID-19 [Recovering/Resolving]
  - Psoriasis [Recovering/Resolving]

NARRATIVE: CASE EVENT DATE: 20220101
